FAERS Safety Report 6253250-6 (Version None)
Quarter: 2009Q3

REPORT INFORMATION
  Report Type: 
  Country: None (occurrence: None)
  Receive Date: 20090701
  Receipt Date: 20090629
  Transmission Date: 20100115
  Serious: Yes (Other)
  Sender: FDA-Public Use
  Company Number: US-BRISTOL-MYERS SQUIBB COMPANY-14683486

PATIENT
  Age: 61 Year
  Sex: Female
  Weight: 54 kg

DRUGS (5)
  1. MEGACE [Suspect]
     Dosage: 2 DF = 2(UNIT UNKNOWN)
     Route: 048
     Dates: start: 20090401
  2. SERTRALINE HCL [Suspect]
     Dates: start: 20090424
  3. EXELON [Concomitant]
  4. NAMENDA [Concomitant]
     Dates: start: 20090201
  5. SYNTHROID [Concomitant]
     Dates: start: 20060101

REACTIONS (1)
  - HEPATIC ENZYME INCREASED [None]
